FAERS Safety Report 24242982 (Version 1)
Quarter: 2024Q3

REPORT INFORMATION
  Report Type: Spontaneous
  Country: US (occurrence: None)
  Receive Date: 20240822
  Receipt Date: 20240822
  Transmission Date: 20241017
  Serious: Yes (Life-Threatening)
  Sender: Public
  Company Number: None

PATIENT
  Age: 44 Year
  Sex: Female
  Weight: 105.75 kg

DRUGS (7)
  1. OZEMPIC [Suspect]
     Active Substance: SEMAGLUTIDE
     Dates: start: 20220201, end: 20221222
  2. ELIQUIS [Concomitant]
  3. Zofran [Concomitant]
  4. PANTOPRAZOLE [Concomitant]
  5. TRAMADOL [Concomitant]
  6. Port a cath [Concomitant]
  7. Chemofherapy [Concomitant]

REACTIONS (1)
  - Pancreatic neuroendocrine tumour [None]

NARRATIVE: CASE EVENT DATE: 20240730
